FAERS Safety Report 23650625 (Version 1)
Quarter: 2024Q1

REPORT INFORMATION
  Report Type: Spontaneous
  Country: US (occurrence: None)
  Receive Date: 20240320
  Receipt Date: 20240320
  Transmission Date: 20240410
  Serious: Yes (Other)
  Sender: FDA-Public Use
  Company Number: US-ROCHE-3435036

PATIENT
  Age: 70 Year
  Sex: Female

DRUGS (2)
  1. VABYSMO [Suspect]
     Active Substance: FARICIMAB\FARICIMAB-SVOA
     Indication: Neovascular age-related macular degeneration
     Dosage: ON 02/MAR/2023, RECEIVED LAST DOSE OF FARICIMAB. ??OS
     Route: 050
     Dates: start: 20220613, end: 20220720
  2. LUCENTIS [Concomitant]
     Active Substance: RANIBIZUMAB
     Indication: Neovascular age-related macular degeneration
     Dosage: 20/07/2022
     Route: 050
     Dates: start: 2018, end: 20220613

REACTIONS (3)
  - Iridocyclitis [Recovered/Resolved]
  - Chorioretinitis [Unknown]
  - Eye inflammation [Unknown]

NARRATIVE: CASE EVENT DATE: 20230414
